FAERS Safety Report 7080858-0 (Version None)
Quarter: 2010Q4

REPORT INFORMATION
  Report Type: 
  Country: None (occurrence: None)
  Receive Date: 20101103
  Receipt Date: 20101022
  Transmission Date: 20110411
  Serious: Yes (Hospitalization)
  Sender: FDA-Public Use
  Company Number: IT-PFIZER INC-2010019457

PATIENT
  Age: 52 Year
  Sex: Female

DRUGS (4)
  1. ZAVEDOS [Suspect]
     Indication: ACUTE MYELOID LEUKAEMIA
     Dosage: 21 MG, DAILY
     Route: 042
     Dates: start: 20090405
  2. ARACYTIN [Suspect]
     Indication: ACUTE MYELOID LEUKAEMIA
     Dosage: 358 MG, DAILY
     Route: 042
     Dates: start: 20090405
  3. ETOPOSIDE [Suspect]
     Indication: ACUTE MYELOID LEUKAEMIA
     Dosage: 179 MG, DAILY
     Route: 042
     Dates: start: 20090406
  4. HYDROXYCARBAMIDE [Suspect]
     Indication: ACUTE MYELOID LEUKAEMIA
     Dosage: 3 G, DAILY
     Route: 048
     Dates: start: 20090401

REACTIONS (4)
  - DIARRHOEA [None]
  - ERYTHEMA [None]
  - GASTROINTESTINAL INFLAMMATION [None]
  - STOMATITIS NECROTISING [None]
